FAERS Safety Report 4322586-8 (Version None)
Quarter: 2004Q1

REPORT INFORMATION
  Report Type: 
  Country: None (occurrence: None)
  Receive Date: 20040324
  Receipt Date: 20031105
  Transmission Date: 20041129
  Serious: Yes (Other)
  Sender: FDA-Public Use
  Company Number: PHBS2003CA12432

PATIENT
  Sex: Female

DRUGS (5)
  1. CLOZARIL [Suspect]
     Route: 048
  2. LITHIUM [Concomitant]
     Route: 065
  3. EPIVAL [Suspect]
     Route: 065
  4. FRISIUM [Concomitant]
     Route: 065
  5. ALESSE [Suspect]
     Indication: ORAL CONTRACEPTION
     Route: 048

REACTIONS (2)
  - ANTICONVULSANT DRUG LEVEL DECREASED [None]
  - CONVULSION [None]
